FAERS Safety Report 21712239 (Version 1)
Quarter: 2022Q4

REPORT INFORMATION
  Report Type: Spontaneous
  Country: US (occurrence: US)
  Receive Date: 20221212
  Receipt Date: 20221212
  Transmission Date: 20230112
  Serious: No
  Sender: FDA-Public Use
  Company Number: US-BAUSCH-BL-2022-026701

PATIENT
  Age: 65 Year
  Sex: Male

DRUGS (2)
  1. TRULANCE [Suspect]
     Active Substance: PLECANATIDE
     Indication: Constipation
     Route: 048
     Dates: start: 20221130
  2. MILK OF MAGNESIA [Concomitant]
     Active Substance: MAGNESIUM HYDROXIDE
     Indication: Product used for unknown indication
     Route: 048

REACTIONS (3)
  - Gastrointestinal sounds abnormal [Unknown]
  - Diarrhoea [Unknown]
  - Flatulence [Unknown]

NARRATIVE: CASE EVENT DATE: 20220101
